FAERS Safety Report 17097037 (Version 1)
Quarter: 2019Q4

REPORT INFORMATION
  Report Type: Spontaneous
  Country: US (occurrence: US)
  Receive Date: 20191202
  Receipt Date: 20191202
  Transmission Date: 20200122
  Serious: No
  Sender: FDA-Public Use
  Company Number: US-GLAXOSMITHKLINE-US2019215212

PATIENT
  Sex: Male

DRUGS (1)
  1. FLONASE ALLERGY RELIEF [Suspect]
     Active Substance: FLUTICASONE PROPIONATE
     Indication: SINUS DISORDER
     Dosage: 2 SQUIRTZ
     Dates: start: 20191122, end: 20191126

REACTIONS (6)
  - Dizziness [Unknown]
  - Nasal dryness [Unknown]
  - Dry eye [Unknown]
  - Vision blurred [Unknown]
  - Product use in unapproved indication [Unknown]
  - Dry mouth [Unknown]

NARRATIVE: CASE EVENT DATE: 20191122
